FAERS Safety Report 23609181 (Version 2)
Quarter: 2024Q1

REPORT INFORMATION
  Report Type: Spontaneous
  Country: US (occurrence: US)
  Receive Date: 20240308
  Receipt Date: 20240315
  Transmission Date: 20240410
  Serious: Yes (Hospitalization)
  Sender: FDA-Public Use
  Company Number: US-THERATECHNOLOGIES INC.-2024-THE-IBA-000071

PATIENT

DRUGS (26)
  1. TROGARZO [Suspect]
     Active Substance: IBALIZUMAB-UIYK
     Indication: HIV infection
     Dosage: 800 MG, EVERY 14 DAYS, IV PUSH
     Route: 042
     Dates: start: 202305
  2. TROGARZO [Suspect]
     Active Substance: IBALIZUMAB-UIYK
     Dosage: 800 MG, EVERY 14 DAYS, IV PUSH
     Route: 042
  3. SODIUM CHLORIDE [Concomitant]
     Active Substance: SODIUM CHLORIDE
     Indication: Product used for unknown indication
     Dosage: FLUSH, 5 ML
     Route: 065
  4. SULFAMETHOXAZOLE AND TRIMETHOPRIM [Concomitant]
     Active Substance: SULFAMETHOXAZOLE\TRIMETHOPRIM
     Indication: Skin infection
     Dosage: 800-160 MG, 1 TABLET, BID FOR 7 DAYS
     Route: 048
  5. NICODERM CQ [Concomitant]
     Active Substance: NICOTINE
     Indication: Tobacco abuse
     Dosage: 21 MG, 1 PATCH TO SKIN, QD
     Route: 062
  6. LIPITOR [Concomitant]
     Active Substance: ATORVASTATIN CALCIUM
     Indication: Type 2 diabetes mellitus
     Dosage: 20 MG, QD, 1 TABLET
     Route: 048
  7. EPINEPHRINE [Concomitant]
     Active Substance: EPINEPHRINE
     Indication: Hypersensitivity
     Dosage: 0.3 MG/0.3 ML, ONCE IF NEEDED
     Route: 030
  8. LENACAPAVIR [Concomitant]
     Active Substance: LENACAPAVIR
     Indication: HIV infection
     Dosage: 463.5 MG/ 1.5 ML, 927 MG EVERY 6 MONTHS
     Route: 058
  9. RUKOBIA [Concomitant]
     Active Substance: FOSTEMSAVIR TROMETHAMINE
     Indication: HIV infection
     Dosage: 600 MG, 1 TABLET, BID,
     Route: 048
  10. VALTREX [Concomitant]
     Active Substance: VALACYCLOVIR HYDROCHLORIDE
     Indication: HIV infection
     Dosage: 1 G, 1 TABLET, QD
     Route: 048
  11. NARCAN [Concomitant]
     Active Substance: NALOXONE HYDROCHLORIDE
     Indication: HIV infection
     Dosage: 4 MG/ 0.1 ML, 1 -2 TIMES AS NEEDED FOR SUSPECTED OVERDOSE
     Route: 045
  12. ERGOCALCIFEROL [Concomitant]
     Active Substance: ERGOCALCIFEROL
     Indication: Product used for unknown indication
     Dosage: 1.25 MG, 1 CAPSULE ONCE PER WEEK
     Route: 048
  13. VENTOLIN HFA [Concomitant]
     Active Substance: ALBUTEROL SULFATE
     Indication: Tobacco abuse
     Dosage: 108 (90 BASE) MCG/ACT 1 PUFF AS NEEDED EVERY 4 HRS
  14. GABAPENTIN [Concomitant]
     Active Substance: GABAPENTIN
     Indication: Type 2 diabetes mellitus
     Dosage: 300 MG, 1 CAPSULE, BID
     Route: 048
  15. ATOVAQUONE [Concomitant]
     Active Substance: ATOVAQUONE
     Indication: HIV infection
     Dosage: 750 MG/5 ML, 10 ML WITH FOOD , ONCE DAILY
     Route: 048
  16. SODIUM CHLORIDE [Concomitant]
     Active Substance: SODIUM CHLORIDE
     Indication: HIV infection
     Dosage: 0.9%, 250 ML, EVERY OTHER WEEK
     Route: 042
  17. TIVICAY [Concomitant]
     Active Substance: DOLUTEGRAVIR SODIUM
     Indication: HIV infection
     Dosage: 50 MG, 1 TABLET BID
     Route: 048
  18. SYMTUZA [Concomitant]
     Active Substance: COBICISTAT\DARUNAVIR\EMTRICITABINE\TENOFOVIR ALAFENAMIDE
     Indication: HIV infection
     Dosage: 800-150-200-10 MG, 1 TABLET, QD
     Route: 048
  19. TRULICITY [Concomitant]
     Active Substance: DULAGLUTIDE
     Indication: Type 2 diabetes mellitus
     Dosage: 3 MG, ONCE PER WEEK
     Route: 058
  20. HIBICLENS [Concomitant]
     Active Substance: CHLORHEXIDINE GLUCONATE
     Indication: Skin infection
     Dosage: 4 %, BID
     Route: 061
  21. CLARITIN [Concomitant]
     Active Substance: LORATADINE
     Indication: Product used for unknown indication
     Dosage: 10 MG, 1 TABLET, QD
     Route: 048
  22. LISINOPRIL [Concomitant]
     Active Substance: LISINOPRIL
     Indication: Essential hypertension
     Dosage: 10 MG, 1 TABLET, QD
     Route: 048
  23. SILDENAFIL CITRATE [Concomitant]
     Active Substance: SILDENAFIL CITRATE
     Indication: Erectile dysfunction
     Dosage: 20 MG, 2 TABLETS, QD
     Route: 048
  24. IBUPROFEN [Concomitant]
     Active Substance: IBUPROFEN
     Indication: Dupuytren^s contracture
     Dosage: 800 MG, 1 TABLET, AS NEEDED, EVERY 12 HOURS
     Route: 048
  25. DICLOFENAC SODIUM [Concomitant]
     Active Substance: DICLOFENAC\DICLOFENAC SODIUM
     Indication: Dupuytren^s contracture
     Dosage: 3 %, 1 APPLICATION, AS NEEDED TWICE A DAY
     Route: 061
  26. MUPIROCIN [Concomitant]
     Active Substance: MUPIROCIN
     Indication: Skin infection
     Dosage: 2 %, 1 APPLICATION, BID
     Route: 061

REACTIONS (1)
  - Pneumonia [Recovered/Resolved]

NARRATIVE: CASE EVENT DATE: 20240222
